FAERS Safety Report 6793827-2 (Version None)
Quarter: 2010Q2

REPORT INFORMATION
  Report Type: 
  Country: None (occurrence: None)
  Receive Date: 20100624
  Receipt Date: 20090314
  Transmission Date: 20101027
  Serious: Yes (Other)
  Sender: FDA-Public Use
  Company Number: US-PFIZER INC-2009165681

PATIENT
  Sex: Female
  Weight: 64.41 kg

DRUGS (2)
  1. DEPO-SUBQ PROVERA 104 [Suspect]
     Indication: CONTRACEPTION
     Dosage: 104 MG, UNK
     Route: 058
     Dates: start: 20080811, end: 20080811
  2. VITAMINS [Concomitant]
     Dosage: UNK

REACTIONS (2)
  - INJECTION SITE REACTION [None]
  - WEIGHT DECREASED [None]
